FAERS Safety Report 11082024 (Version 1)
Quarter: 2015Q2

REPORT INFORMATION
  Report Type: Report from Study
  Country: TN (occurrence: TN)
  Receive Date: 20150501
  Receipt Date: 20150501
  Transmission Date: 20150821
  Serious: Yes (Death)
  Sender: FDA-Public Use
  Company Number: TN-SA-2015SA054323

PATIENT
  Age: 58 Year
  Sex: Male

DRUGS (7)
  1. LASILIX [Concomitant]
     Active Substance: FUROSEMIDE
     Route: 048
  2. CORVASAL [Concomitant]
     Active Substance: LINSIDOMINE
  3. PLAVIX [Suspect]
     Active Substance: CLOPIDOGREL BISULFATE
     Indication: MYOCARDIAL INFARCTION
     Route: 048
     Dates: start: 20141126, end: 201503
  4. LOPRIL [Concomitant]
     Active Substance: LISINOPRIL
     Route: 048
  5. LESCOL [Concomitant]
     Active Substance: FLUVASTATIN SODIUM
     Route: 048
  6. KARDEGIC [Concomitant]
     Active Substance: ASPIRIN LYSINE
     Route: 048
  7. ISOPHANE INSULIN [Concomitant]
     Active Substance: INSULIN NOS

REACTIONS (5)
  - Fatigue [Fatal]
  - Pain in extremity [Fatal]
  - Peripheral arterial occlusive disease [Fatal]
  - Decubitus ulcer [Fatal]
  - Post procedural haemorrhage [Fatal]

NARRATIVE: CASE EVENT DATE: 201502
